FAERS Safety Report 7792778-4 (Version None)
Quarter: 2011Q4

REPORT INFORMATION
  Report Type: 
  Country: None (occurrence: None)
  Receive Date: 20111003
  Receipt Date: 20110927
  Transmission Date: 20120403
  Serious: Yes (Hospitalization)
  Sender: FDA-Public Use
  Company Number: US-SANOFI-AVENTIS-2011SA052862

PATIENT
  Age: 59 Year
  Sex: Female
  Weight: 103 kg

DRUGS (13)
  1. SOLOSTAR [Suspect]
     Indication: TYPE 2 DIABETES MELLITUS
  2. LANTUS [Suspect]
     Indication: TYPE 2 DIABETES MELLITUS
     Dosage: DOSE:24 UNIT(S)
     Route: 058
  3. NEXIUM [Concomitant]
  4. HUMULIN N [Concomitant]
     Dosage: DOSE:20 UNIT(S)
  5. NAPROXEN SODIUM [Concomitant]
  6. JANUVIA [Concomitant]
  7. LIPITOR [Concomitant]
  8. BYETTA [Concomitant]
     Dosage: DOSE:10 UNIT(S)
  9. LANTUS [Suspect]
     Dosage: DOSE:100 UNIT(S)
     Route: 058
  10. THEOPHYLLINE [Concomitant]
  11. ENALAPRIL MALEATE [Concomitant]
  12. HYDROCHLOROTHIAZIDE [Concomitant]
  13. VESICARE [Concomitant]

REACTIONS (3)
  - BLOOD GLUCOSE INCREASED [None]
  - BLOOD GLUCOSE DECREASED [None]
  - RECTAL HAEMORRHAGE [None]
